FAERS Safety Report 8048631-4 (Version None)
Quarter: 2012Q1

REPORT INFORMATION
  Report Type: 
  Country: None (occurrence: None)
  Receive Date: 20120117
  Receipt Date: 20120109
  Transmission Date: 20120608
  Serious: Yes (Other)
  Sender: FDA-Public Use
  Company Number: CN-BAYER-2012-000564

PATIENT
  Age: 37 Year
  Sex: Male

DRUGS (2)
  1. SARIDON [Suspect]
     Indication: HEADACHE
     Dosage: 2 DF, ONCE
     Route: 048
     Dates: start: 20110922
  2. FLUNARIZINE [Concomitant]
     Indication: HEADACHE

REACTIONS (6)
  - HEPATIC FUNCTION ABNORMAL [None]
  - ABDOMINAL PAIN [None]
  - HYPERLIPIDAEMIA [None]
  - HEPATIC STEATOSIS [None]
  - RENAL FAILURE [None]
  - HEPATIC FAILURE [None]
